FAERS Safety Report 7459759-1 (Version None)
Quarter: 2011Q2

REPORT INFORMATION
  Report Type: 
  Country: None (occurrence: None)
  Receive Date: 20110427
  Receipt Date: 20110418
  Transmission Date: 20111010
  Serious: Yes (Other)
  Sender: FDA-Public Use
  Company Number: GER/UKI/11/0018046

PATIENT
  Age: 71 Year
  Sex: Male

DRUGS (9)
  1. ASPIRIN [Concomitant]
  2. MOVICOL (NULYTELY /01053601/) [Concomitant]
  3. NICORANDIL (NICORANDIL) [Concomitant]
  4. DILTIAZEM HYDROCHLORIDE [Concomitant]
  5. TRAMADOL HCL [Concomitant]
  6. VITAMIN B COMPLEX (B-KOMPLEX) [Concomitant]
  7. PROCTOSEDYL (PROCTOSEDYL /00095901/) [Concomitant]
  8. OMEPRAZOLE [Suspect]
     Indication: PRODUCT USED FOR UNKNOWN INDICATION
     Dosage: 20 MG, ORAL
     Route: 048
  9. PRAVASTATIN [Concomitant]

REACTIONS (2)
  - MALAISE [None]
  - HAEMATEMESIS [None]
